FAERS Safety Report 9642620 (Version 4)
Quarter: 2018Q2

REPORT INFORMATION
  Report Type: Spontaneous
  Country: US (occurrence: US)
  Receive Date: 20131024
  Receipt Date: 20180531
  Transmission Date: 20180711
  Serious: Yes (Hospitalization, Other)
  Sender: FDA-Public Use
  Company Number: US-PFIZER INC-2013303934

PATIENT
  Age: 64 Year
  Sex: Female

DRUGS (11)
  1. CRESTOR [Concomitant]
     Active Substance: ROSUVASTATIN CALCIUM
     Dosage: 10 MG, DAILY
  2. PEPCID [Concomitant]
     Active Substance: FAMOTIDINE
     Dosage: 2 DF, DAILY
  3. CLONIDINE. [Concomitant]
     Active Substance: CLONIDINE
     Dosage: 0.1 MG, 3X/DAY
  4. SPIRONOLACTONE. [Concomitant]
     Active Substance: SPIRONOLACTONE
     Dosage: 50 MG, DAILY
  5. WARFARIN [Concomitant]
     Active Substance: WARFARIN
     Dosage: 2 MG, 2X/DAY
  6. LABETALOL HCL [Concomitant]
     Active Substance: LABETALOL HYDROCHLORIDE
     Dosage: 200 MG, 2X/DAY
  7. WARFARIN [Concomitant]
     Active Substance: WARFARIN
     Dosage: 1 MG, 2X/DAY
  8. AMLODIPINE [Concomitant]
     Active Substance: AMLODIPINE BESYLATE
     Dosage: 5 MG, 1X/DAY
  9. METFORMIN HYDROCHLORIDE. [Concomitant]
     Active Substance: METFORMIN HYDROCHLORIDE
     Dosage: 1000 MG, DAILY
  10. PROZAC [Concomitant]
     Active Substance: FLUOXETINE HYDROCHLORIDE
     Dosage: 20 MG, DAILY
  11. TIKOSYN [Suspect]
     Active Substance: DOFETILIDE
     Dosage: 500 MG, DAILY
     Dates: start: 2013

REACTIONS (3)
  - Visual acuity reduced [Not Recovered/Not Resolved]
  - Hypoacusis [Not Recovered/Not Resolved]
  - Blindness traumatic [Not Recovered/Not Resolved]

NARRATIVE: CASE EVENT DATE: 2014
